FAERS Safety Report 6602405-7 (Version None)
Quarter: 2010Q1

REPORT INFORMATION
  Report Type: 
  Country: None (occurrence: None)
  Receive Date: 20100225
  Receipt Date: 20100216
  Transmission Date: 20100710
  Serious: Yes (Death)
  Sender: FDA-Public Use
  Company Number: B0635945A

PATIENT
  Sex: Female
  Weight: 16 kg

DRUGS (4)
  1. ZANAMIVIR [Suspect]
     Indication: H1N1 INFLUENZA
     Dosage: 20MGK TWICE PER DAY
     Route: 042
     Dates: start: 20091127, end: 20091201
  2. VENTILATION [Concomitant]
     Indication: ACUTE RESPIRATORY DISTRESS SYNDROME
  3. TAMIFLU [Concomitant]
     Indication: H1N1 INFLUENZA
     Route: 042
  4. RIBAVIRIN [Concomitant]
     Indication: H1N1 INFLUENZA
     Dosage: 180MG THREE TIMES PER DAY
     Route: 042
     Dates: start: 20091107

REACTIONS (1)
  - DEATH [None]
